FAERS Safety Report 9601236 (Version 1)
Quarter: 2013Q4

REPORT INFORMATION
  Report Type: Spontaneous
  Country: AT (occurrence: AT)
  Receive Date: 20131005
  Receipt Date: 20131005
  Transmission Date: 20140711
  Serious: Yes (Other)
  Sender: FDA-Public Use
  Company Number: AT-TEVA-434400ISR

PATIENT
  Sex: Male

DRUGS (4)
  1. RATIODOLOR 300/20 [Suspect]
     Indication: TOOTHACHE
     Dosage: 3-4 TABLETS DAILY
  2. RATIODOLOR 300/20 [Suspect]
     Indication: PAIN IN JAW
  3. AMOXICILLIN [Concomitant]
     Indication: PULPITIS DENTAL
     Route: 042
  4. AMOXICILLIN [Concomitant]
     Indication: OSTEITIS
     Route: 048

REACTIONS (3)
  - Overdose [Unknown]
  - Renal disorder [Unknown]
  - C-reactive protein increased [Unknown]
